FAERS Safety Report 13901597 (Version 9)
Quarter: 2018Q4

REPORT INFORMATION
  Report Type: Report from Study
  Country: DE (occurrence: DE)
  Receive Date: 20170824
  Receipt Date: 20181201
  Transmission Date: 20190204
  Serious: Yes (Hospitalization, Other)
  Sender: FDA-Public Use
  Company Number: PHHY2017DE122442

PATIENT
  Age: 62 Year
  Sex: Female
  Weight: 70 kg

DRUGS (19)
  1. COSENTYX [Suspect]
     Active Substance: SECUKINUMAB
     Dosage: 150 MG, UNK PER APPLICATION
     Route: 058
     Dates: start: 20161021
  2. METHOTREXATE. [Concomitant]
     Active Substance: METHOTREXATE
     Indication: PSORIATIC ARTHROPATHY
     Dosage: 15 MG, QW (ONE PER WEEK)
     Route: 048
     Dates: start: 20070503
  3. FOLIC ACID. [Concomitant]
     Active Substance: FOLIC ACID
     Indication: DRUG INTOLERANCE
  4. COSENTYX [Suspect]
     Active Substance: SECUKINUMAB
     Dosage: 150 MG, UNK PER APPLICATION
     Route: 058
     Dates: start: 20170601
  5. COSENTYX [Suspect]
     Active Substance: SECUKINUMAB
     Dosage: 150 MG, UNK PER APPLICATION
     Route: 058
     Dates: start: 20170701
  6. COSENTYX [Suspect]
     Active Substance: SECUKINUMAB
     Dosage: 150 MG, UNK PER APPLICATION
     Route: 058
     Dates: start: 20170901
  7. COSENTYX [Suspect]
     Active Substance: SECUKINUMAB
     Dosage: 150 MG, UNK PER APPLICATION
     Route: 058
     Dates: start: 20161209
  8. FOLIC ACID. [Concomitant]
     Active Substance: FOLIC ACID
     Indication: DRUG INTOLERANCE
     Dosage: 5 MG, QW
     Route: 048
     Dates: start: 20070503
  9. COSENTYX [Suspect]
     Active Substance: SECUKINUMAB
     Dosage: 150 MG, UNK PER APPLICATION
     Route: 058
     Dates: start: 20170101
  10. COSENTYX [Suspect]
     Active Substance: SECUKINUMAB
     Dosage: 150 MG, UNK PER APPLICATION
     Route: 058
     Dates: start: 20170301
  11. COSENTYX [Suspect]
     Active Substance: SECUKINUMAB
     Dosage: 150 MG, UNK PER APPLICATION
     Route: 058
     Dates: start: 20161014
  12. COSENTYX [Suspect]
     Active Substance: SECUKINUMAB
     Dosage: 150 MG, UNK PER APPLICATION
     Route: 058
     Dates: start: 20161109
  13. COSENTYX [Suspect]
     Active Substance: SECUKINUMAB
     Dosage: 150 MG, UNK PER APPLICATION
     Route: 058
     Dates: start: 20170201
  14. COSENTYX [Suspect]
     Active Substance: SECUKINUMAB
     Dosage: 150 MG, UNK PER APPLICATION
     Route: 058
     Dates: start: 20170501
  15. COSENTYX [Suspect]
     Active Substance: SECUKINUMAB
     Indication: PSORIATIC ARTHROPATHY
     Dosage: 150 MG, UNK PER APPLICATION
     Route: 058
     Dates: start: 20160929
  16. COSENTYX [Suspect]
     Active Substance: SECUKINUMAB
     Dosage: 150 MG, UNK PER APPLICATION
     Route: 058
     Dates: start: 20161007
  17. COSENTYX [Suspect]
     Active Substance: SECUKINUMAB
     Dosage: 150 MG, UNK PER APPLICATION
     Route: 058
     Dates: start: 20170401
  18. COSENTYX [Suspect]
     Active Substance: SECUKINUMAB
     Dosage: 150 MG, UNK PER APPLICATION
     Route: 058
     Dates: start: 20161102
  19. COSENTYX [Suspect]
     Active Substance: SECUKINUMAB
     Dosage: 150 MG, UNK PER APPLICATION
     Route: 058
     Dates: start: 20170801

REACTIONS (6)
  - Tendon disorder [Recovered/Resolved]
  - Device related infection [Recovered/Resolved]
  - Wound necrosis [Recovered/Resolved]
  - Leukopenia [Not Recovered/Not Resolved]
  - Sepsis [Unknown]
  - Inappropriate schedule of product administration [Recovered/Resolved]

NARRATIVE: CASE EVENT DATE: 20161102
